FAERS Safety Report 25658754 (Version 1)
Quarter: 2025Q3

REPORT INFORMATION
  Report Type: Spontaneous
  Country: CA (occurrence: CA)
  Receive Date: 20250808
  Receipt Date: 20250808
  Transmission Date: 20251021
  Serious: Yes (Death)
  Sender: SANDOZ
  Company Number: CA-SANDOZ-SDZ2025CA057098

PATIENT
  Age: 74 Year
  Sex: Female

DRUGS (1)
  1. AZITHROMYCIN [Suspect]
     Active Substance: AZITHROMYCIN
     Indication: Bronchitis
     Route: 065

REACTIONS (6)
  - Cardiac arrest [Fatal]
  - Chest pain [Fatal]
  - Electrocardiogram QT prolonged [Fatal]
  - Heart rate irregular [Fatal]
  - Malaise [Fatal]
  - Presyncope [Fatal]
